FAERS Safety Report 8779758 (Version 3)
Quarter: 2012Q4

REPORT INFORMATION
  Report Type: 
  Country: US (occurrence: US)
  Receive Date: 20120912
  Receipt Date: 20120927
  Transmission Date: 20130627
  Serious: Yes (Other)
  Sender: FDA-Public Use
  Company Number: US-JNJFOC-20120902199

PATIENT

DRUGS (7)
  1. DOXORUBICIN [Suspect]
     Indication: EWING^S SARCOMA
     Route: 042
  2. DOXORUBICIN [Suspect]
     Indication: EWING^S SARCOMA
     Route: 065
  3. VINCRISTINE [Suspect]
     Indication: EWING^S SARCOMA
     Route: 065
  4. CYCLOPHOSPHAMIDE [Suspect]
     Indication: EWING^S SARCOMA
     Route: 065
  5. IFOSFAMIDE [Suspect]
     Indication: EWING^S SARCOMA
     Route: 065
  6. ETOPOSIDE [Suspect]
     Indication: EWING^S SARCOMA
     Route: 065
  7. GRANULOCYTE MACROPHAGE COLONY STIM FACTOR [Concomitant]
     Indication: SUPPORTIVE CARE
     Route: 065

REACTIONS (2)
  - Hypocalcaemia [Unknown]
  - Off label use [Unknown]
